FAERS Safety Report 23982144 (Version 1)
Quarter: 2024Q2

REPORT INFORMATION
  Report Type: Spontaneous
  Country: FR (occurrence: FR)
  Receive Date: 20240617
  Receipt Date: 20240617
  Transmission Date: 20240716
  Serious: Yes (Congenital Anomaly)
  Sender: FDA-Public Use
  Company Number: None

PATIENT
  Age: 5 Day
  Sex: Male

DRUGS (3)
  1. ALLEGRA [Suspect]
     Active Substance: FEXOFENADINE HYDROCHLORIDE
     Indication: Maternal exposure during pregnancy
     Dosage: 180 MG A DAY FROM WEEK 15+6 TO WEEK 18 OF PREGNANCY
     Route: 064
     Dates: start: 202212, end: 202301
  2. EBASTINE [Suspect]
     Active Substance: EBASTINE
     Indication: Maternal exposure during pregnancy
     Dosage: WEEK 0 TO WEEK 15+5 OF PREGNANCY? 5 MG FILM-COATED TABLE
     Route: 064
     Dates: start: 202211, end: 202212
  3. EBASTINE [Suspect]
     Active Substance: EBASTINE
     Indication: Maternal exposure during pregnancy
     Dosage: WEEK 13 TO WEEK 15 OF PREGNANCY
     Route: 064
     Dates: start: 20220901, end: 202212

REACTIONS (1)
  - External auditory canal atresia [Not Recovered/Not Resolved]

NARRATIVE: CASE EVENT DATE: 20230512
